FAERS Safety Report 4986961-0 (Version None)
Quarter: 2006Q2

REPORT INFORMATION
  Report Type: 
  Country: None (occurrence: None)
  Receive Date: 20060428
  Receipt Date: 20060428
  Transmission Date: 20061013
  Serious: Yes (Hospitalization)
  Sender: FDA-Public Use
  Company Number: None

PATIENT
  Sex: Male
  Weight: 138.3471 kg

DRUGS (2)
  1. ZYVOX [Suspect]
     Indication: POSTOPERATIVE WOUND INFECTION
     Dosage: 600 MG BID PO
     Route: 048
     Dates: start: 20051231, end: 20060405
  2. ZYVOX [Suspect]
     Indication: STAPHYLOCOCCAL INFECTION
     Dosage: 600 MG BID PO
     Route: 048
     Dates: start: 20051231, end: 20060405

REACTIONS (3)
  - ANAEMIA [None]
  - PANCYTOPENIA [None]
  - THROMBOCYTOPENIA [None]
